FAERS Safety Report 5948150-2 (Version None)
Quarter: 2008Q4

REPORT INFORMATION
  Report Type: 
  Country: None (occurrence: None)
  Receive Date: 20081111
  Receipt Date: 20081028
  Transmission Date: 20090506
  Serious: Yes (Hospitalization)
  Sender: FDA-Public Use
  Company Number: US-BAYER-200814213BCC

PATIENT
  Age: 62 Year
  Sex: Female
  Weight: 59 kg

DRUGS (5)
  1. ALKA-SELTZER PLUS (FORMULATION NOT SPECIFIED) [Suspect]
     Indication: NASOPHARYNGITIS
  2. HIGH BLOOD PRESSURE [Concomitant]
  3. EVISTA [Concomitant]
  4. VITAMIN C AND E [Concomitant]
  5. CALCIUM [Concomitant]

REACTIONS (4)
  - CEREBRAL HAEMORRHAGE [None]
  - HAEMORRHAGIC STROKE [None]
  - HYPOAESTHESIA [None]
  - INTRACRANIAL ANEURYSM [None]
